FAERS Safety Report 7424268-2 (Version None)
Quarter: 2011Q2

REPORT INFORMATION
  Report Type: 
  Country: None (occurrence: None)
  Receive Date: 20110419
  Receipt Date: 20110412
  Transmission Date: 20111010
  Serious: Yes (Hospitalization)
  Sender: FDA-Public Use
  Company Number: TR-ABBOTT-11P-161-0718355-00

PATIENT
  Age: 81 Year
  Sex: Male
  Weight: 70 kg

DRUGS (3)
  1. LUPRON DEPOT [Suspect]
     Indication: PROSTATE CANCER METASTATIC
     Dosage: FOR 3 MONTHS
  2. ZOLEDRONIC ACID [Suspect]
     Indication: PRODUCT USED FOR UNKNOWN INDICATION
  3. BICALUTAMIDE [Suspect]
     Indication: PRODUCT USED FOR UNKNOWN INDICATION

REACTIONS (1)
  - RENAL FAILURE ACUTE [None]
